FAERS Safety Report 20408878 (Version 1)
Quarter: 2022Q1

REPORT INFORMATION
  Report Type: Spontaneous
  Country: CY (occurrence: CY)
  Receive Date: 20220201
  Receipt Date: 20220201
  Transmission Date: 20220423
  Serious: Yes (Hospitalization, Other)
  Sender: FDA-Public Use
  Company Number: CY-IPCA LABORATORIES LIMITED-IPC-2022-CY-000113

PATIENT

DRUGS (3)
  1. WARFARIN [Suspect]
     Active Substance: WARFARIN
     Indication: Aortic valve replacement
     Dosage: UNK
     Route: 065
  2. HEPARIN [Concomitant]
     Active Substance: HEPARIN SODIUM
     Indication: Aortic valve replacement
     Dosage: UNK
     Route: 065
  3. ARGATROBAN [Concomitant]
     Active Substance: ARGATROBAN
     Indication: Aortic valve replacement
     Dosage: UNK
     Route: 065

REACTIONS (2)
  - Spontaneous haemorrhage [Unknown]
  - Hemiparesis [Unknown]
